FAERS Safety Report 8954689 (Version 1)
Quarter: 2012Q4

REPORT INFORMATION
  Report Type: Spontaneous
  Country: GB (occurrence: None)
  Receive Date: 20121130
  Receipt Date: 20121130
  Transmission Date: 20130627
  Serious: Yes (Other)
  Sender: FDA-Public Use
  Company Number: FK201203556

PATIENT

DRUGS (2)
  1. INTRALIPID [Suspect]
     Indication: PRODUCT USED FOR UNKNOWN INDICATION
     Dosage: Intravenous (not otherwise specified)
     Route: 042
  2. VAMIN (VAMIN) (VAMIN) [Concomitant]

REACTIONS (3)
  - Overdose [None]
  - Hyperbilirubinaemia [None]
  - Hypertriglyceridaemia [None]
